FAERS Safety Report 4887640-0 (Version None)
Quarter: 2006Q1

REPORT INFORMATION
  Report Type: 
  Country: None (occurrence: None)
  Receive Date: 20060123
  Receipt Date: 20060109
  Transmission Date: 20060701
  Serious: Yes (Hospitalization)
  Sender: FDA-Public Use
  Company Number: NL-AVENTIS-200610287EU

PATIENT
  Age: 88 Year
  Sex: Male
  Weight: 72 kg

DRUGS (7)
  1. ENOXAPARIN [Suspect]
     Indication: ANGINA UNSTABLE
     Route: 058
     Dates: end: 20031007
  2. ASPIRIN [Concomitant]
     Dosage: DOSE: UNK
  3. PRAVASTATIN [Concomitant]
     Dosage: DOSE: UNK
     Dates: start: 20030930, end: 20031003
  4. ATENOLOL [Concomitant]
     Dosage: DOSE: UNK
  5. CORONARY VASODILATORS [Concomitant]
     Dosage: DOSE: UNK
  6. NEXIUM [Concomitant]
     Dosage: DOSE: UNK
  7. NIFEDIPINE [Concomitant]
     Dosage: DOSE: UNK

REACTIONS (3)
  - BLADDER NEOPLASM SURGERY [None]
  - MUSCULAR WEAKNESS [None]
  - MYOCARDIAL ISCHAEMIA [None]
